FAERS Safety Report 12217894 (Version 1)
Quarter: 2016Q1

REPORT INFORMATION
  Report Type: Spontaneous
  Country: JP (occurrence: JP)
  Receive Date: 20160329
  Receipt Date: 20160329
  Transmission Date: 20160526
  Serious: Yes (Hospitalization, Other)
  Sender: FDA-Public Use
  Company Number: JP-BRISTOL-MYERS SQUIBB COMPANY-BMS-2014-008184

PATIENT
  Age: 72 Year
  Sex: Male
  Weight: 44 kg

DRUGS (1)
  1. WARFARIN SODIUM. [Suspect]
     Active Substance: WARFARIN SODIUM
     Indication: THROMBOSIS PROPHYLAXIS
     Dosage: 1 MG, QD
     Route: 048
     Dates: start: 20150605

REACTIONS (2)
  - Paracentesis [Unknown]
  - Ascites [Recovering/Resolving]

NARRATIVE: CASE EVENT DATE: 20150701
